FAERS Safety Report 5334879-6 (Version None)
Quarter: 2007Q2

REPORT INFORMATION
  Report Type: 
  Country: None (occurrence: None)
  Receive Date: 20070525
  Receipt Date: 20070518
  Transmission Date: 20071010
  Serious: Yes (Hospitalization)
  Sender: FDA-Public Use
  Company Number: JP-ASTRAZENECA-2007AP02042

PATIENT
  Age: 50 Year
  Sex: Male

DRUGS (6)
  1. MEROPEN [Suspect]
     Route: 042
  2. OMEPRAL [Suspect]
     Route: 042
  3. ELASPOL [Suspect]
     Route: 042
     Dates: end: 20070406
  4. TARGOCID [Suspect]
     Route: 042
  5. ERYTHOROCIN [Suspect]
     Route: 042
  6. SOLU-MEDROL [Suspect]
     Route: 042

REACTIONS (1)
  - HYPERNATRAEMIA [None]
